FAERS Safety Report 21158721 (Version 2)
Quarter: 2023Q1

REPORT INFORMATION
  Report Type: Spontaneous
  Country: GB (occurrence: None)
  Receive Date: 20220802
  Receipt Date: 20230331
  Transmission Date: 20230418
  Serious: Yes (Other)
  Sender: FDA-Public Use
  Company Number: 2022A267381

PATIENT
  Age: 81 Year
  Sex: Female
  Weight: 60 kg

DRUGS (73)
  1. DAPAGLIFLOZIN [Suspect]
     Active Substance: DAPAGLIFLOZIN
     Indication: Ill-defined disorder
     Route: 065
  2. DAPAGLIFLOZIN [Suspect]
     Active Substance: DAPAGLIFLOZIN
     Indication: Ill-defined disorder
     Route: 048
     Dates: start: 20230217
  3. DAPAGLIFLOZIN [Suspect]
     Active Substance: DAPAGLIFLOZIN
     Indication: Ill-defined disorder
     Route: 065
     Dates: start: 20220401, end: 20230316
  4. DAPAGLIFLOZIN [Suspect]
     Active Substance: DAPAGLIFLOZIN
     Indication: Ill-defined disorder
     Route: 065
     Dates: start: 20220725
  5. CANDESARTAN [Suspect]
     Active Substance: CANDESARTAN
     Indication: Product used for unknown indication
     Dosage: ONE TO BE TAKEN EACH DAY
     Dates: start: 20230222
  6. CANDESARTAN [Suspect]
     Active Substance: CANDESARTAN
     Indication: Product used for unknown indication
     Dosage: 2 MG, ONCE DAILY (QD) MORNING; OFF LABEL USE
     Route: 048
     Dates: start: 20230222
  7. FELODIPINE [Suspect]
     Active Substance: FELODIPINE
     Indication: Blood pressure measurement
  8. FELODIPINE [Suspect]
     Active Substance: FELODIPINE
     Indication: Blood pressure measurement
     Dates: start: 20230106
  9. ASTRAZENECA COVID-19 VACCINE [Suspect]
     Active Substance: AZD-1222
     Indication: COVID-19 immunisation
     Dosage: DOSE 2
     Dates: start: 20210517
  10. ASTRAZENECA COVID-19 VACCINE [Suspect]
     Active Substance: AZD-1222
     Indication: COVID-19 immunisation
     Dosage: DOSE 2
     Dates: start: 20210517
  11. ASTRAZENECA COVID-19 VACCINE [Suspect]
     Active Substance: AZD-1222
     Indication: COVID-19 immunisation
     Dosage: DOSE 1
     Dates: start: 20210312
  12. ASTRAZENECA COVID-19 VACCINE [Suspect]
     Active Substance: AZD-1222
     Indication: COVID-19 immunisation
     Dosage: DOSE 1
     Dates: start: 20210312
  13. ASTRAZENECA COVID-19 VACCINE [Suspect]
     Active Substance: AZD-1222
     Indication: COVID-19 immunisation
     Dosage: DOSE 1
     Dates: start: 20210312, end: 20210312
  14. ASTRAZENECA COVID-19 VACCINE [Suspect]
     Active Substance: AZD-1222
     Indication: COVID-19 immunisation
     Dosage: DOSE 1
     Dates: start: 20210312, end: 20210312
  15. ASTRAZENECA COVID-19 VACCINE [Suspect]
     Active Substance: AZD-1222
     Indication: COVID-19 immunisation
     Dosage: DOSE 2
     Dates: start: 20210622, end: 20210622
  16. ASTRAZENECA COVID-19 VACCINE [Suspect]
     Active Substance: AZD-1222
     Indication: COVID-19 immunisation
     Dosage: DOSE 2
     Dates: start: 20210622, end: 20210622
  17. ASTRAZENECA COVID-19 VACCINE [Suspect]
     Active Substance: AZD-1222
     Indication: COVID-19 immunisation
     Dosage: DOSE 4
     Dates: start: 20221214
  18. ASTRAZENECA COVID-19 VACCINE [Suspect]
     Active Substance: AZD-1222
     Indication: COVID-19 immunisation
     Dosage: DOSE 4
     Dates: start: 20221214
  19. ASTRAZENECA COVID-19 VACCINE [Suspect]
     Active Substance: AZD-1222
     Indication: COVID-19 immunisation
  20. ASTRAZENECA COVID-19 VACCINE [Suspect]
     Active Substance: AZD-1222
     Indication: COVID-19 immunisation
  21. ASTRAZENECA COVID-19 VACCINE [Suspect]
     Active Substance: AZD-1222
     Indication: COVID-19 immunisation
     Dosage: DOSE 2
     Dates: start: 20210605
  22. ASTRAZENECA COVID-19 VACCINE [Suspect]
     Active Substance: AZD-1222
     Indication: COVID-19 immunisation
     Dosage: DOSE 2
     Dates: start: 20210605
  23. ASTRAZENECA COVID-19 VACCINE [Suspect]
     Active Substance: AZD-1222
     Indication: COVID-19 immunisation
     Dates: start: 20210625
  24. ASTRAZENECA COVID-19 VACCINE [Suspect]
     Active Substance: AZD-1222
     Indication: COVID-19 immunisation
     Dates: start: 20210625
  25. ASTRAZENECA COVID-19 VACCINE [Suspect]
     Active Substance: AZD-1222
     Indication: COVID-19 immunisation
     Dosage: DOSE 3C
     Dates: start: 20211221, end: 20211221
  26. ASTRAZENECA COVID-19 VACCINE [Suspect]
     Active Substance: AZD-1222
     Indication: COVID-19 immunisation
     Dosage: DOSE 3C
     Dates: start: 20211221, end: 20211221
  27. ASTRAZENECA COVID-19 VACCINE [Suspect]
     Active Substance: AZD-1222
     Indication: COVID-19 immunisation
     Dates: start: 20210208, end: 20210208
  28. ASTRAZENECA COVID-19 VACCINE [Suspect]
     Active Substance: AZD-1222
     Indication: COVID-19 immunisation
     Dates: start: 20210208, end: 20210208
  29. ASTRAZENECA COVID-19 VACCINE [Suspect]
     Active Substance: AZD-1222
     Indication: COVID-19 immunisation
     Dosage: DOSE 4
  30. ASTRAZENECA COVID-19 VACCINE [Suspect]
     Active Substance: AZD-1222
     Indication: COVID-19 immunisation
     Dosage: DOSE 4
  31. ASTRAZENECA COVID-19 VACCINE [Suspect]
     Active Substance: AZD-1222
     Indication: COVID-19 immunisation
     Dosage: DOSE 4
     Dates: start: 20211021
  32. ASTRAZENECA COVID-19 VACCINE [Suspect]
     Active Substance: AZD-1222
     Indication: COVID-19 immunisation
     Dosage: DOSE 4
     Dates: start: 20211021
  33. ASTRAZENECA COVID-19 VACCINE [Suspect]
     Active Substance: AZD-1222
     Indication: COVID-19 immunisation
     Dosage: DOSE 2
     Dates: start: 20210703
  34. ASTRAZENECA COVID-19 VACCINE [Suspect]
     Active Substance: AZD-1222
     Indication: COVID-19 immunisation
     Dosage: DOSE 2
     Dates: start: 20210703
  35. ASTRAZENECA COVID-19 VACCINE [Suspect]
     Active Substance: AZD-1222
     Indication: COVID-19 immunisation
     Dosage: DOSE 1
     Dates: start: 20210507
  36. ASTRAZENECA COVID-19 VACCINE [Suspect]
     Active Substance: AZD-1222
     Indication: COVID-19 immunisation
     Dosage: DOSE 1
     Dates: start: 20210507
  37. IMDUR [Suspect]
     Active Substance: ISOSORBIDE MONONITRATE
     Indication: Product used for unknown indication
     Dosage: 50 MILLIGRAM, QD (IN MORNING)
     Route: 048
  38. ESOMEPRAZOLE [Suspect]
     Active Substance: ESOMEPRAZOLE
     Indication: Reflux laryngitis
     Dosage: AFTER EVERY MEAL
  39. ISOSORBIDE MONONITRATE [Suspect]
     Active Substance: ISOSORBIDE MONONITRATE
     Indication: Product used for unknown indication
     Dosage: DRUG USE FOR UNKNOWN INDICATION
     Route: 048
  40. APIXABAN [Suspect]
     Active Substance: APIXABAN
     Indication: Cerebrovascular accident prophylaxis
     Dosage: 10 MG (1 DAY); OLU: OFF LABEL DOSING FREQUENCY
     Dates: start: 20180207, end: 20180207
  41. APIXABAN [Suspect]
     Active Substance: APIXABAN
     Indication: Cerebrovascular accident prophylaxis
     Dosage: 5 MG, QD, OLU: OFF LABEL DOSING FREQUENCY
     Dates: start: 20180207, end: 20180207
  42. BISOPROLOL FUMARATE [Suspect]
     Active Substance: BISOPROLOL FUMARATE
     Indication: Cerebrovascular accident prophylaxis
     Dosage: 10 MG (1 DAY)10 MG, QD; OFF LABEL USE
  43. BISOPROLOL FUMARATE [Suspect]
     Active Substance: BISOPROLOL FUMARATE
     Indication: Cerebrovascular accident prophylaxis
     Dosage: 5 MG, QD; OFF LABEL USE
     Dates: start: 20180207, end: 20180207
  44. NAPROXEN [Suspect]
     Active Substance: NAPROXEN
  45. HYDROCHLOROTHIAZIDE [Suspect]
     Active Substance: HYDROCHLOROTHIAZIDE
     Indication: Product used for unknown indication
     Dosage: 2 MG, QD (MORNING)
     Route: 048
  46. CETIRIZINE HYDROCHLORIDE [Suspect]
     Active Substance: CETIRIZINE HYDROCHLORIDE
     Indication: Product used for unknown indication
     Dosage: 10 MILLIGRAM, QD (IN MORNING)
     Route: 048
  47. DIGOXIN [Suspect]
     Active Substance: DIGOXIN
     Indication: Cerebrovascular accident prophylaxis
     Dosage: 62.5 MICROGRAM, ONCE DAILY (QD) (MORNING)
  48. LEVOTHYROXINE SODIUM [Suspect]
     Active Substance: LEVOTHYROXINE SODIUM
     Indication: Product used for unknown indication
     Dosage: 12 MICROGRAM, ONCE A DAY
  49. LEVOTHYROXINE SODIUM [Suspect]
     Active Substance: LEVOTHYROXINE SODIUM
     Indication: Product used for unknown indication
     Dosage: 125 MICROGRAM, QD (MORNING)
  50. LEVOTHYROXINE SODIUM [Suspect]
     Active Substance: LEVOTHYROXINE SODIUM
     Indication: Product used for unknown indication
     Dosage: 50 MICROGRAM, ONCE A DAY (MORNING)
  51. LINAGLIPTIN [Suspect]
     Active Substance: LINAGLIPTIN
     Indication: Product used for unknown indication
     Dosage: 5 MG, ONCE DAILY (QD) (MORNING)
  52. LANSOPRAZOLE [Suspect]
     Active Substance: LANSOPRAZOLE
     Indication: Atrial fibrillation
     Dosage: 30 MG, ONCE DAILY (QD)30.0MG UNKNOWN
  53. LANSOPRAZOLE [Suspect]
     Active Substance: LANSOPRAZOLE
     Indication: Atrial fibrillation
     Dosage: 10 MILLIGRAM, QD; 5MG, QD10.0MG UNKNOWN
  54. SIMVASTATIN [Suspect]
     Active Substance: SIMVASTATIN
     Indication: Product used for unknown indication
     Dosage: 40 MG, ONCE DAILY (QD) (NIGHT)
     Route: 048
  55. ISOSORBIDE DINITRATE [Suspect]
     Active Substance: ISOSORBIDE DINITRATE
     Indication: Product used for unknown indication
     Dosage: 50 MILLIGRAM, ONCE A DAY
     Route: 048
  56. PREDNISOLONE [Concomitant]
     Active Substance: PREDNISOLONE
     Dosage: 8 TABLETS ONCE A DAY FOR 5 DAYS.
     Dates: start: 20230318
  57. RAMIPRIL [Concomitant]
     Active Substance: RAMIPRIL
     Dosage: TAKE ONE DAILY
     Dates: start: 20221111
  58. SILDENAFIL [Concomitant]
     Active Substance: SILDENAFIL
     Dosage: 1 TABLET WHEN REQUIRED
     Dates: start: 20210916
  59. SITAGLIPTIN [Concomitant]
     Active Substance: SITAGLIPTIN
     Dosage: TAKE ONE DAILY
     Dates: start: 20220818, end: 20230106
  60. ACETAMINOPHEN\CODEINE PHOSPHATE [Concomitant]
     Active Substance: ACETAMINOPHEN\CODEINE PHOSPHATE
     Dosage: 2 EVERY 6 HOURS MAX 8/DAY
     Dates: start: 20221111
  61. MINERAL OIL\PARAFFIN [Concomitant]
     Active Substance: MINERAL OIL\PARAFFIN
     Dosage: APPLY AS REQUIRED
     Dates: start: 20220224
  62. METFORMIN [Concomitant]
     Active Substance: METFORMIN HYDROCHLORIDE
     Indication: Diabetes mellitus
  63. AMLODIPINE [Concomitant]
     Active Substance: AMLODIPINE BESYLATE
     Dosage: IN THE EVENING
     Dates: start: 20220401
  64. LEVOTHYROXINE [Concomitant]
     Active Substance: LEVOTHYROXINE
     Indication: Ill-defined disorder
     Dosage: IN THE EVENING
     Dates: start: 20220401
  65. LOSARTAN [Concomitant]
     Active Substance: LOSARTAN
     Indication: Ill-defined disorder
     Dosage: IN THE EVENING
     Dates: start: 20210628
  66. DAPAGLIFLOZIN [Concomitant]
     Active Substance: DAPAGLIFLOZIN
     Indication: Ill-defined disorder
     Dosage: TAKE ONE DAILY
     Route: 065
     Dates: start: 20220512
  67. NITROGLYCERIN [Concomitant]
     Active Substance: NITROGLYCERIN
     Indication: Ill-defined disorder
     Dosage: 1 -2 SPRAY FOR CHEST PAIN
     Route: 065
     Dates: start: 20210628
  68. LANSOPRAZOLE [Concomitant]
     Active Substance: LANSOPRAZOLE
     Indication: Ill-defined disorder
     Dosage: TAKE ONE DAILY
     Route: 065
     Dates: start: 20210628
  69. LOSARTAN [Concomitant]
     Active Substance: LOSARTAN
     Indication: Ill-defined disorder
     Dosage: TAKE ONE AT NIGHT
     Route: 065
     Dates: start: 20210628
  70. LEVOTHYROXINE [Concomitant]
     Active Substance: LEVOTHYROXINE
     Indication: Ill-defined disorder
     Dosage: ONE TO BE TAKEN DAILY
     Route: 065
     Dates: start: 20210628
  71. SOTALOL [Concomitant]
     Active Substance: SOTALOL
     Indication: Ill-defined disorder
     Dosage: ONE THREE TIMES A DAY
     Route: 065
     Dates: start: 20210628
  72. SPIRONOLACTONE [Concomitant]
     Active Substance: SPIRONOLACTONE
     Indication: Ill-defined disorder
     Dosage: TAKE 1 EVERY MORNING AND ARRANGE BLOOD TEST 10 ...
     Route: 065
     Dates: start: 20220408, end: 20220512
  73. WARFARIN SODIUM [Concomitant]
     Active Substance: WARFARIN SODIUM
     Indication: Ill-defined disorder
     Dosage: TAKE ONE AS DIRECTED BY ANTICOAGULANT CLINIC
     Route: 065
     Dates: start: 20210628

REACTIONS (74)
  - Dizziness [Recovered/Resolved]
  - Nausea [Recovered/Resolved]
  - Diarrhoea [Recovered/Resolved]
  - Malaise [Unknown]
  - Abdominal discomfort [Unknown]
  - Headache [Recovered/Resolved]
  - Hallucination [Recovered/Resolved]
  - Angioedema [Recovered/Resolved]
  - Malaise [Unknown]
  - COVID-19 [Recovered/Resolved]
  - Tinnitus [Not Recovered/Not Resolved]
  - Arthralgia [Recovered/Resolved]
  - Pain of skin [Recovered/Resolved]
  - Peripheral swelling [Recovered/Resolved]
  - Disturbance in attention [Recovered/Resolved]
  - Cognitive disorder [Recovered/Resolved]
  - Memory impairment [Recovering/Resolving]
  - Visual impairment [Not Recovered/Not Resolved]
  - Blindness [Not Recovered/Not Resolved]
  - Diplopia [Not Recovered/Not Resolved]
  - Blindness [Not Recovered/Not Resolved]
  - Vasculitis [Not Recovered/Not Resolved]
  - Carotid artery occlusion [Not Recovered/Not Resolved]
  - Transient ischaemic attack [Recovered/Resolved]
  - Pruritus genital [Recovered/Resolved]
  - Sleep terror [Recovered/Resolved]
  - Fatigue [Recovered/Resolved]
  - Vomiting [Recovered/Resolved]
  - Ventricular tachycardia [Not Recovered/Not Resolved]
  - Pericarditis [Not Recovered/Not Resolved]
  - Cardiospasm [Not Recovered/Not Resolved]
  - Dyspnoea [Unknown]
  - Atrial tachycardia [Unknown]
  - Fatigue [Recovered/Resolved]
  - Anxiety [Not Recovered/Not Resolved]
  - Muscular weakness [Unknown]
  - Feeling abnormal [Unknown]
  - Insomnia [Unknown]
  - Heart rate increased [Unknown]
  - Muscle twitching [Unknown]
  - Abdominal pain upper [Unknown]
  - Dehydration [Unknown]
  - Hyperhidrosis [Unknown]
  - Rash [Recovering/Resolving]
  - Lip swelling [Recovering/Resolving]
  - Pruritus [Recovering/Resolving]
  - Palmoplantar keratoderma [Not Recovered/Not Resolved]
  - Dry skin [Not Recovered/Not Resolved]
  - Myocardial infarction [Recovered/Resolved]
  - Chest pain [Unknown]
  - Palpitations [Unknown]
  - Tachycardia [Unknown]
  - Subarachnoid haemorrhage [Recovered/Resolved]
  - Off label use [Recovered/Resolved]
  - Intentional product misuse [Unknown]
  - Off label use [Unknown]
  - Pain [Recovered/Resolved]
  - Anosmia [Recovered/Resolved]
  - Eye pruritus [Recovered/Resolved]
  - Facial pain [Recovered/Resolved]
  - Fatigue [Recovered/Resolved]
  - Abdominal discomfort [Recovered/Resolved]
  - Back pain [Unknown]
  - Adverse drug reaction [Not Recovered/Not Resolved]
  - Abdominal pain upper [Not Recovered/Not Resolved]
  - Blood glucose increased [Not Recovered/Not Resolved]
  - Amnesia [Not Recovered/Not Resolved]
  - Blindness [Recovered/Resolved]
  - Immunisation [Recovered/Resolved]
  - Alopecia [Recovered/Resolved]
  - Pyrexia [Unknown]
  - Tension headache [Not Recovered/Not Resolved]
  - Migraine [Not Recovered/Not Resolved]
  - Intentional product use issue [Unknown]

NARRATIVE: CASE EVENT DATE: 20180207
